FAERS Safety Report 8789469 (Version 1)
Quarter: 2012Q4

REPORT INFORMATION
  Report Type: Spontaneous
  Country: US (occurrence: None)
  Receive Date: 20120910
  Receipt Date: 20120910
  Transmission Date: 20130627
  Serious: Yes (Other)
  Sender: FDA-Public Use
  Company Number: None

PATIENT
  Age: 89 Year
  Sex: Male
  Weight: 73.7 kg

DRUGS (1)
  1. DABIGATRAN [Suspect]
     Indication: ATRIAL FIBRILLATION
     Route: 048
     Dates: start: 20120707

REACTIONS (7)
  - Thrombocytopenia [None]
  - White blood cell count increased [None]
  - Red blood cell count decreased [None]
  - Haemoglobin decreased [None]
  - Haematocrit decreased [None]
  - Fatigue [None]
  - Chronic myeloid leukaemia [None]
